FAERS Safety Report 22254376 (Version 1)
Quarter: 2023Q2

REPORT INFORMATION
  Report Type: Spontaneous
  Country: FI (occurrence: FI)
  Receive Date: 20230426
  Receipt Date: 20230426
  Transmission Date: 20230721
  Serious: Yes (Other)
  Sender: FDA-Public Use
  Company Number: None

PATIENT
  Age: 31 Year
  Sex: Female

DRUGS (1)
  1. LEVONORGESTREL [Suspect]
     Active Substance: LEVONORGESTREL
     Indication: Contraception
     Dosage: 14?G/DAY
     Route: 015
     Dates: start: 202008, end: 20230216

REACTIONS (3)
  - Device expulsion [Recovered/Resolved]
  - Pregnancy with contraceptive device [Recovering/Resolving]
  - Abortion induced [Recovering/Resolving]

NARRATIVE: CASE EVENT DATE: 20230105
